FAERS Safety Report 25082349 (Version 1)
Quarter: 2025Q1

REPORT INFORMATION
  Report Type: Spontaneous
  Country: US (occurrence: US)
  Receive Date: 20250317
  Receipt Date: 20250317
  Transmission Date: 20250409
  Serious: Yes (Other)
  Sender: UNICHEM
  Company Number: US-UNICHEM LABORATORIES LIMITED-UNI-2025-US-001434

PATIENT

DRUGS (8)
  1. BACLOFEN [Suspect]
     Active Substance: BACLOFEN
     Indication: Cerebral palsy
     Route: 065
  2. BACLOFEN [Suspect]
     Active Substance: BACLOFEN
     Route: 065
  3. BACLOFEN [Suspect]
     Active Substance: BACLOFEN
     Route: 065
  4. BACLOFEN [Suspect]
     Active Substance: BACLOFEN
     Route: 065
  5. BACLOFEN [Suspect]
     Active Substance: BACLOFEN
     Route: 065
  6. BACLOFEN [Suspect]
     Active Substance: BACLOFEN
     Route: 065
  7. BACLOFEN [Suspect]
     Active Substance: BACLOFEN
     Route: 065
  8. BACLOFEN [Suspect]
     Active Substance: BACLOFEN
     Route: 065

REACTIONS (11)
  - Escherichia pyelonephritis [Unknown]
  - Chlamydial infection [Unknown]
  - Amniotic cavity infection [Unknown]
  - Caesarean section [Unknown]
  - Exposure during pregnancy [Unknown]
  - Muscular weakness [Unknown]
  - Fall [Recovering/Resolving]
  - Gestational hypertension [Unknown]
  - Subchorionic haemorrhage [Unknown]
  - Asymptomatic bacteriuria [Unknown]
  - Muscle spasticity [Recovering/Resolving]
